FAERS Safety Report 23780422 (Version 2)
Quarter: 2024Q2

REPORT INFORMATION
  Report Type: Report from Study
  Country: JP (occurrence: JP)
  Receive Date: 20240424
  Receipt Date: 20240612
  Transmission Date: 20240716
  Serious: Yes (Other)
  Sender: FDA-Public Use
  Company Number: JP-GSK-JP2024JPN004235

PATIENT

DRUGS (43)
  1. MEPOLIZUMAB [Suspect]
     Active Substance: MEPOLIZUMAB
     Indication: Eosinophilic granulomatosis with polyangiitis
     Dosage: 300 MG, Q4W
     Dates: start: 20190628, end: 20190823
  2. BETAMETHASONE [Suspect]
     Active Substance: BETAMETHASONE\BETAMETHASONE DIPROPIONATE
     Indication: Eosinophilic granulomatosis with polyangiitis
     Dosage: 5 MG, QD
     Route: 048
     Dates: end: 20190610
  3. BETAMETHASONE [Suspect]
     Active Substance: BETAMETHASONE\BETAMETHASONE DIPROPIONATE
     Dosage: 4.5 MG, QD
     Route: 048
     Dates: start: 20190611, end: 20190624
  4. BETAMETHASONE [Suspect]
     Active Substance: BETAMETHASONE\BETAMETHASONE DIPROPIONATE
     Dosage: 4 MG, QD
     Route: 048
     Dates: start: 20190625, end: 20190708
  5. BETAMETHASONE [Suspect]
     Active Substance: BETAMETHASONE\BETAMETHASONE DIPROPIONATE
     Dosage: 3.5 MG, QD
     Route: 048
     Dates: start: 20190709, end: 20190722
  6. BETAMETHASONE [Suspect]
     Active Substance: BETAMETHASONE\BETAMETHASONE DIPROPIONATE
     Dosage: 3.25 MG, QD
     Route: 048
     Dates: start: 20190723, end: 20190806
  7. BETAMETHASONE [Suspect]
     Active Substance: BETAMETHASONE\BETAMETHASONE DIPROPIONATE
     Dosage: 3 MG, QD
     Route: 048
     Dates: start: 20190807, end: 20190822
  8. BETAMETHASONE [Suspect]
     Active Substance: BETAMETHASONE\BETAMETHASONE DIPROPIONATE
     Dosage: 2.75 MG, QD
     Route: 048
     Dates: start: 20190823
  9. BETAMETHASONE [Suspect]
     Active Substance: BETAMETHASONE\BETAMETHASONE DIPROPIONATE
     Dosage: 2.5 MG, QD
     Route: 048
     Dates: start: 20191001, end: 20191024
  10. BETAMETHASONE [Suspect]
     Active Substance: BETAMETHASONE\BETAMETHASONE DIPROPIONATE
     Dosage: 2.25 MG, QD
     Route: 048
     Dates: start: 20191025, end: 20191121
  11. BETAMETHASONE [Suspect]
     Active Substance: BETAMETHASONE\BETAMETHASONE DIPROPIONATE
     Dosage: 2 MG, QD
     Route: 048
     Dates: start: 20191122, end: 20191219
  12. BETAMETHASONE [Suspect]
     Active Substance: BETAMETHASONE\BETAMETHASONE DIPROPIONATE
     Dosage: 1.75 MG, QD
     Route: 048
     Dates: start: 20191220, end: 20200116
  13. BETAMETHASONE [Suspect]
     Active Substance: BETAMETHASONE\BETAMETHASONE DIPROPIONATE
     Dosage: 1.5 MG, QD
     Route: 048
     Dates: start: 20200117, end: 20200213
  14. BETAMETHASONE [Suspect]
     Active Substance: BETAMETHASONE\BETAMETHASONE DIPROPIONATE
     Dosage: 1.25 MG, QD
     Route: 048
     Dates: start: 20200214, end: 20200312
  15. BETAMETHASONE [Suspect]
     Active Substance: BETAMETHASONE\BETAMETHASONE DIPROPIONATE
     Dosage: 1 MG, QD
     Route: 048
     Dates: start: 20200313, end: 20200409
  16. BETAMETHASONE [Suspect]
     Active Substance: BETAMETHASONE\BETAMETHASONE DIPROPIONATE
     Dosage: 0.9 MG, QD
     Route: 048
     Dates: start: 20200410, end: 20200507
  17. BETAMETHASONE [Suspect]
     Active Substance: BETAMETHASONE\BETAMETHASONE DIPROPIONATE
     Dosage: 0.8 MG, QD
     Route: 048
     Dates: start: 20200508, end: 20200604
  18. BETAMETHASONE [Suspect]
     Active Substance: BETAMETHASONE\BETAMETHASONE DIPROPIONATE
     Dosage: 0.7 MG, QD
     Route: 048
     Dates: start: 20200605, end: 20200702
  19. BETAMETHASONE [Suspect]
     Active Substance: BETAMETHASONE\BETAMETHASONE DIPROPIONATE
     Dosage: 0.6 MG, QD
     Route: 048
     Dates: start: 20200703, end: 20200806
  20. BETAMETHASONE [Suspect]
     Active Substance: BETAMETHASONE\BETAMETHASONE DIPROPIONATE
     Dosage: 0.5 MG, QD
     Route: 048
     Dates: start: 20200807
  21. CYCLOPHOSPHAMIDE [Suspect]
     Active Substance: CYCLOPHOSPHAMIDE
     Indication: Eosinophilic granulomatosis with polyangiitis
     Dosage: 500 MG, QD
     Dates: start: 20190611, end: 20190611
  22. CYCLOPHOSPHAMIDE [Suspect]
     Active Substance: CYCLOPHOSPHAMIDE
     Dosage: 500 MG, QD
     Dates: start: 20190625, end: 20190625
  23. CYCLOPHOSPHAMIDE [Suspect]
     Active Substance: CYCLOPHOSPHAMIDE
     Dosage: 500 MG, QD
     Dates: start: 20190709, end: 20190709
  24. CYCLOPHOSPHAMIDE [Suspect]
     Active Substance: CYCLOPHOSPHAMIDE
     Dosage: 500 MG, QD
     Dates: start: 20190723, end: 20190723
  25. CYCLOPHOSPHAMIDE [Suspect]
     Active Substance: CYCLOPHOSPHAMIDE
     Dosage: 500 MG, QD
     Dates: start: 20190806, end: 20190806
  26. AZATHIOPRINE [Concomitant]
     Active Substance: AZATHIOPRINE
     Indication: Eosinophilic granulomatosis with polyangiitis
     Dosage: 50 MG, QD
     Dates: start: 20190823, end: 20190910
  27. AZATHIOPRINE [Concomitant]
     Active Substance: AZATHIOPRINE
     Dosage: 100 MG, QD
     Dates: start: 20190911
  28. RITUXAN [Concomitant]
     Active Substance: RITUXIMAB
     Indication: Eosinophilic granulomatosis with polyangiitis
     Dosage: 600 MG, QD
     Dates: start: 20190920, end: 20190920
  29. RITUXAN [Concomitant]
     Active Substance: RITUXIMAB
     Dosage: 600 MG, QD
     Dates: start: 20190927, end: 20190927
  30. RITUXAN [Concomitant]
     Active Substance: RITUXIMAB
     Dosage: 600 MG, QD
     Dates: start: 20191004, end: 20191004
  31. RITUXAN [Concomitant]
     Active Substance: RITUXIMAB
     Dosage: 600 MG, QD
     Dates: start: 20191011, end: 20191011
  32. RITUXAN [Concomitant]
     Active Substance: RITUXIMAB
     Dosage: 600 MG, QD
     Dates: start: 20201112, end: 20201112
  33. RITUXAN [Concomitant]
     Active Substance: RITUXIMAB
     Dosage: 600 MG, QD
     Dates: start: 20201119, end: 20201119
  34. RITUXAN [Concomitant]
     Active Substance: RITUXIMAB
     Dosage: 600 MG, QD
     Dates: start: 20201127, end: 20201127
  35. RITUXAN [Concomitant]
     Active Substance: RITUXIMAB
     Dosage: 600 MG, QD
     Dates: start: 20201204, end: 20201204
  36. LANSOPRAZOLE [Concomitant]
     Active Substance: LANSOPRAZOLE
     Dosage: UNK
  37. ATORVASTATIN [Concomitant]
     Active Substance: ATORVASTATIN
     Dosage: UNK
  38. BONALON [Concomitant]
     Active Substance: ALENDRONATE SODIUM
     Dosage: UNK
  39. REBAMIPIDE [Concomitant]
     Active Substance: REBAMIPIDE
     Dosage: UNK
  40. LOXOPROFEN [Concomitant]
     Active Substance: LOXOPROFEN
     Indication: Eosinophilic granulomatosis with polyangiitis
     Dosage: UNK
  41. MONTELUKAST [Concomitant]
     Active Substance: MONTELUKAST SODIUM
     Dosage: UNK
  42. SULFAMETHOXAZOLE\TRIMETHOPRIM [Concomitant]
     Active Substance: SULFAMETHOXAZOLE\TRIMETHOPRIM
     Indication: Antifungal prophylaxis
     Dosage: UNK
  43. VONOPRAZAN FUMARATE [Concomitant]
     Active Substance: VONOPRAZAN FUMARATE
     Dosage: UNK

REACTIONS (3)
  - Hypogammaglobulinaemia [Recovering/Resolving]
  - Condition aggravated [Recovering/Resolving]
  - Drug ineffective [Unknown]

NARRATIVE: CASE EVENT DATE: 20190722
